FAERS Safety Report 18115841 (Version 4)
Quarter: 2020Q4

REPORT INFORMATION
  Report Type: Report from Study
  Country: DE (occurrence: DE)
  Receive Date: 20200805
  Receipt Date: 20201021
  Transmission Date: 20210113
  Serious: Yes (Hospitalization, Other)
  Sender: FDA-Public Use
  Company Number: DE-MYLANLABS-2020M1068818

PATIENT
  Age: 75 Year
  Sex: Female
  Weight: 88 kg

DRUGS (12)
  1. MOVICOL [Suspect]
     Active Substance: POLYETHYLENE GLYCOL 3350\POTASSIUM CHLORIDE\SODIUM BICARBONATE\SODIUM CHLORIDE
     Indication: NEUROGENIC BOWEL
     Dosage: UNK, QD
     Route: 048
  2. NOVALGIN                           /00169801/ [Concomitant]
     Active Substance: ACETAMINOPHEN\CAFFEINE\PROPYPHENAZONE
     Indication: PRODUCT USED FOR UNKNOWN INDICATION
     Dosage: UNK
  3. METFORMIN [Suspect]
     Active Substance: METFORMIN HYDROCHLORIDE
     Indication: DIABETES MELLITUS
     Dosage: 500 MILLIGRAM (0.5 DAY)
     Route: 048
  4. FOLSAN [Suspect]
     Active Substance: FOLIC ACID
     Indication: FOLATE DEFICIENCY
     Dosage: 5 MILLIGRAM, QD
     Route: 048
  5. BISOPROLOL [Suspect]
     Active Substance: BISOPROLOL
     Indication: HYPERTENSION
     Dosage: 2.5 MILLIGRAM, QD
     Route: 048
  6. FLECAINIDE [Suspect]
     Active Substance: FLECAINIDE
     Indication: ATRIAL FIBRILLATION
     Dosage: 0.5 DOSAGE FORM, QD
     Route: 048
  7. CLADRIBINE. [Suspect]
     Active Substance: CLADRIBINE
     Dosage: SECOND WEEK THERAPY (TOOK 10 MG ON 15 JUN 2019): MOST RECENT DOSE PRIOR TO AE GIVEN
     Route: 048
     Dates: start: 20190615, end: 20190619
  8. CLADRIBINE. [Suspect]
     Active Substance: CLADRIBINE
     Indication: RELAPSING-REMITTING MULTIPLE SCLEROSIS
     Dosage: FRST WEEK THERAPY (TOOK 10 MG ON 13 MAY 2019)
     Route: 048
     Dates: start: 20190513, end: 20190517
  9. GLIBENCLAMIDE [Suspect]
     Active Substance: GLYBURIDE
     Indication: DIABETES MELLITUS
     Dosage: 3.5 MILLIGRAM, QD
     Route: 048
  10. XARELTO [Suspect]
     Active Substance: RIVAROXABAN
     Indication: VENOUS THROMBOSIS
     Dosage: 20 MILLIGRAM, QD (THERAPY PAUSED)
     Route: 048
  11. TOLPERISONE [Suspect]
     Active Substance: TOLPERISONE
     Indication: CEREBROVASCULAR ACCIDENT
     Dosage: 50 MILLIGRAM, QD
     Route: 048
  12. CLADRIBINE. [Suspect]
     Active Substance: CLADRIBINE
     Dosage: SECOND WEEK THERAPY
     Route: 048
     Dates: start: 20190604, end: 20190611

REACTIONS (1)
  - Uterine cancer [Recovered/Resolved]

NARRATIVE: CASE EVENT DATE: 20190717
